FAERS Safety Report 15936120 (Version 2)
Quarter: 2019Q1

REPORT INFORMATION
  Report Type: Spontaneous
  Country: RU (occurrence: RU)
  Receive Date: 20190208
  Receipt Date: 20190315
  Transmission Date: 20190417
  Serious: Yes (Death, Other)
  Sender: FDA-Public Use
  Company Number: RU-009507513-1902RUS000491

PATIENT
  Age: 66 Year
  Sex: Female
  Weight: 78 kg

DRUGS (2)
  1. LIDOCAINE. [Suspect]
     Active Substance: LIDOCAINE
     Indication: STROKE-LIKE MIGRAINE ATTACKS AFTER RADIATION THERAPY
     Dosage: 4 MILLILITER
     Dates: start: 20190129, end: 20190129
  2. DIPROSPAN [Suspect]
     Active Substance: BETAMETHASONE DIPROPIONATE\BETAMETHASONE SODIUM PHOSPHATE
     Indication: OSTEOARTHRITIS
     Dosage: 1 GRAM
     Route: 052
     Dates: start: 20190129, end: 20190129

REACTIONS (6)
  - Anaphylactic shock [Fatal]
  - Blood pressure decreased [Fatal]
  - Dizziness [Fatal]
  - Loss of consciousness [Fatal]
  - Derailment [Fatal]
  - Seizure [Fatal]

NARRATIVE: CASE EVENT DATE: 20190129
